FAERS Safety Report 5632428-6 (Version None)
Quarter: 2008Q1

REPORT INFORMATION
  Report Type: 
  Country: None (occurrence: None)
  Receive Date: 20080220
  Receipt Date: 20071003
  Transmission Date: 20080703
  Serious: No
  Sender: FDA-Public Use
  Company Number: US-ASTRAZENECA-2007UW18408

PATIENT
  Age: 63 Year
  Sex: Female
  Weight: 59 kg

DRUGS (3)
  1. PLENDIL [Suspect]
     Indication: HYPERTENSION
     Dosage: FOR 6 WEEKS.
     Dates: start: 20070601
  2. FOSAMAX [Concomitant]
  3. EYEDROPS [Concomitant]
     Indication: GLAUCOMA
     Route: 047

REACTIONS (2)
  - BLOOD PRESSURE INCREASED [None]
  - PHARMACEUTICAL PRODUCT COMPLAINT [None]
